FAERS Safety Report 5607004-1 (Version None)
Quarter: 2008Q1

REPORT INFORMATION
  Report Type: 
  Country: None (occurrence: None)
  Receive Date: 20080129
  Receipt Date: 20080121
  Transmission Date: 20080703
  Serious: Yes (Other)
  Sender: FDA-Public Use
  Company Number: JP-MERCK-0801USA04313

PATIENT
  Age: 4 Year
  Sex: Male
  Weight: 15 kg

DRUGS (9)
  1. SINGULAIR [Suspect]
     Indication: ASTHMA
     Route: 048
     Dates: start: 20080107, end: 20080107
  2. PERIACTIN [Suspect]
     Indication: ASTHMA
     Route: 048
     Dates: start: 20080107, end: 20080115
  3. HOKUNALIN [Suspect]
     Indication: ASTHMA
     Route: 061
     Dates: start: 20080107, end: 20080115
  4. ASVERIN [Suspect]
     Indication: ASTHMA
     Route: 048
     Dates: start: 20080107, end: 20080115
  5. CARBOCYSTEINE [Suspect]
     Indication: ASTHMA
     Route: 048
     Dates: start: 20080107, end: 20080115
  6. CLARITHROMYCIN [Suspect]
     Indication: ASTHMA
     Route: 048
     Dates: start: 20080107, end: 20080115
  7. INTAL [Concomitant]
     Dates: start: 20080107
  8. ALEVAIRE [Concomitant]
     Dates: start: 20080107
  9. MEPTIN [Concomitant]
     Dates: start: 20080107

REACTIONS (4)
  - AGITATION [None]
  - CRYING [None]
  - DELIRIUM [None]
  - INSOMNIA [None]
